FAERS Safety Report 21122999 (Version 2)
Quarter: 2022Q3

REPORT INFORMATION
  Report Type: Spontaneous
  Country: US (occurrence: None)
  Receive Date: 20220724
  Receipt Date: 20220824
  Transmission Date: 20221027
  Serious: No
  Sender: FDA-Public Use
  Company Number: 2022A252522

PATIENT
  Age: 26298 Day
  Sex: Male
  Weight: 121.1 kg

DRUGS (2)
  1. BYDUREON BCISE [Suspect]
     Active Substance: EXENATIDE
     Indication: Type 2 diabetes mellitus
     Route: 058
  2. BYDUREON [Suspect]
     Active Substance: EXENATIDE
     Indication: Type 2 diabetes mellitus
     Route: 058

REACTIONS (6)
  - Injury associated with device [Unknown]
  - Injection site haemorrhage [Recovered/Resolved]
  - Product dose omission issue [Not Recovered/Not Resolved]
  - Drug dose omission by device [Unknown]
  - Product use issue [Unknown]
  - Device leakage [Unknown]

NARRATIVE: CASE EVENT DATE: 20220710
